FAERS Safety Report 7274521-0 (Version None)
Quarter: 2011Q1

REPORT INFORMATION
  Report Type: 
  Country: None (occurrence: None)
  Receive Date: 20110201
  Receipt Date: 20110201
  Transmission Date: 20110831
  Serious: Yes (Hospitalization)
  Sender: FDA-Public Use
  Company Number: None

PATIENT
  Age: 69 Year
  Sex: Male
  Weight: 59.1944 kg

DRUGS (1)
  1. IBUPROFEN [Suspect]
     Indication: PAIN
     Dosage: 1800 MG EVERY DAY PO
     Route: 048
     Dates: end: 20101004

REACTIONS (4)
  - NAUSEA [None]
  - ABDOMINAL PAIN [None]
  - RENAL FAILURE ACUTE [None]
  - VOMITING [None]
